FAERS Safety Report 16623586 (Version 1)
Quarter: 2019Q3

REPORT INFORMATION
  Report Type: Report from Study
  Country: None (occurrence: US)
  Receive Date: 20190724
  Receipt Date: 20190724
  Transmission Date: 20191004
  Serious: Yes (Disabling, Other)
  Sender: FDA-Public Use
  Company Number: US-ABBVIE-19K-163-2862216-00

PATIENT
  Age: 56 Year
  Sex: Male

DRUGS (1)
  1. LUPRON DEPOT [Suspect]
     Active Substance: LEUPROLIDE ACETATE
     Indication: PRODUCT USED FOR UNKNOWN INDICATION
     Route: 065

REACTIONS (5)
  - Prostate cancer [Unknown]
  - Hernia [Unknown]
  - Spinal operation [Unknown]
  - Osteoarthritis [Unknown]
  - Disability [Unknown]

NARRATIVE: CASE EVENT DATE: 2019
